FAERS Safety Report 24142676 (Version 3)
Quarter: 2024Q3

REPORT INFORMATION
  Report Type: Spontaneous
  Country: US (occurrence: None)
  Receive Date: 20240726
  Receipt Date: 20240829
  Transmission Date: 20241017
  Serious: Yes (Other)
  Sender: ASTRAZENECA
  Company Number: 2024A165437

PATIENT
  Age: 57 Year
  Sex: Female

DRUGS (1)
  1. BYDUREON BCISE [Suspect]
     Active Substance: EXENATIDE
     Dosage: 2.0MG UNKNOWN

REACTIONS (10)
  - Brain injury [Unknown]
  - Amnesia [Unknown]
  - Weight increased [Unknown]
  - Blood glucose increased [Unknown]
  - Appetite disorder [Unknown]
  - Device use issue [Unknown]
  - Drug ineffective [Unknown]
  - Device malfunction [Unknown]
  - Device leakage [Unknown]
  - Wrong technique in product usage process [Unknown]

NARRATIVE: CASE EVENT DATE: 20110101
